FAERS Safety Report 8861023 (Version 1)
Quarter: 2012Q4

REPORT INFORMATION
  Report Type: Spontaneous
  Country: US (occurrence: None)
  Receive Date: 20121022
  Receipt Date: 20121022
  Transmission Date: 20130627
  Serious: No
  Sender: FDA-Public Use
  Company Number: FK201203046

PATIENT
  Age: 44 Year
  Sex: Male

DRUGS (2)
  1. DEXAMETHASONE [Suspect]
     Indication: MULTIPLE MYELOMA
  2. THALIDOMIDE [Suspect]
     Indication: MULTIPLE MYELOMA

REACTIONS (3)
  - Tumour lysis syndrome [None]
  - Insomnia [None]
  - Stem cell transplant [None]
